FAERS Safety Report 9733565 (Version 3)
Quarter: 2014Q3

REPORT INFORMATION
  Report Type: Spontaneous
  Country: US (occurrence: US)
  Receive Date: 20131205
  Receipt Date: 20140723
  Transmission Date: 20150326
  Serious: Yes (Hospitalization)
  Sender: FDA-Public Use
  Company Number: US-009507513-1311USA011922

PATIENT
  Sex: Female
  Weight: 61.22 kg

DRUGS (1)
  1. NUVARING [Suspect]
     Active Substance: ETHINYL ESTRADIOL\ETONOGESTREL
     Indication: CONTRACEPTION
     Dosage: EVERY 3 WEEKS
     Route: 067
     Dates: start: 200811, end: 20120109

REACTIONS (9)
  - Fall [Unknown]
  - Superior sagittal sinus thrombosis [Unknown]
  - Head injury [Unknown]
  - Memory impairment [Unknown]
  - Migraine [Unknown]
  - Depression [Unknown]
  - Deep vein thrombosis [Unknown]
  - Fall [Unknown]
  - Anxiety [Unknown]

NARRATIVE: CASE EVENT DATE: 200902
